FAERS Safety Report 4314432-3 (Version None)
Quarter: 2004Q1

REPORT INFORMATION
  Report Type: 
  Country: None (occurrence: None)
  Receive Date: 20040308
  Receipt Date: 20040223
  Transmission Date: 20041129
  Serious: Yes (Hospitalization)
  Sender: FDA-Public Use
  Company Number: 235550

PATIENT
  Age: 63 Year
  Sex: Female

DRUGS (3)
  1. NORDITROPIN SIMPLEXX [Suspect]
     Indication: GROWTH HORMONE DEFICIENCY
     Dosage: 0.55 MG, UNK, SUBCUTANEOUS
     Route: 058
     Dates: start: 20000701, end: 20040101
  2. CORTONE (CORTISONE ACETATE) [Concomitant]
  3. EUTIROX (LEVOTHYROXINE) [Concomitant]

REACTIONS (1)
  - ADENOID CYSTIC CARCINOMA [None]
